FAERS Safety Report 16304690 (Version 1)
Quarter: 2019Q2

REPORT INFORMATION
  Report Type: Spontaneous
  Country: IT (occurrence: IT)
  Receive Date: 20190513
  Receipt Date: 20190513
  Transmission Date: 20190711
  Serious: Yes (Other)
  Sender: FDA-Public Use
  Company Number: IT-PFIZER INC-2019198106

PATIENT
  Age: 82 Year
  Sex: Male

DRUGS (10)
  1. LEVOFLOXACIN. [Concomitant]
     Active Substance: LEVOFLOXACIN
     Indication: URINARY TRACT INFECTION
  2. DOXAZOSIN MESILATE [Suspect]
     Active Substance: DOXAZOSIN MESYLATE
     Dosage: 4 MG, 1X/DAY
     Dates: start: 20170214, end: 20170216
  3. BLOPRESS [Interacting]
     Active Substance: CANDESARTAN CILEXETIL
     Dosage: 16 MG, 1X/DAY
     Route: 048
  4. RANEXA [Concomitant]
     Active Substance: RANOLAZINE
     Dosage: 2 DF, UNK
  5. RANITIDINE. [Concomitant]
     Active Substance: RANITIDINE
  6. ALLOPURINOL. [Concomitant]
     Active Substance: ALLOPURINOL
  7. TENORMIN [Interacting]
     Active Substance: ATENOLOL
     Dosage: 25 MG, 1X/DAY
     Route: 048
  8. CARDIOASPIRIN [Concomitant]
     Active Substance: ASPIRIN
     Dosage: 1 DF, UNK
  9. TORVAST [Concomitant]
     Active Substance: ATORVASTATIN
  10. CLOPIDOGREL [Concomitant]
     Active Substance: CLOPIDOGREL BISULFATE

REACTIONS (4)
  - Vertigo [Recovering/Resolving]
  - Hypotension [Recovering/Resolving]
  - Drug interaction [Recovering/Resolving]
  - Balance disorder [Recovering/Resolving]

NARRATIVE: CASE EVENT DATE: 20170216
